FAERS Safety Report 13003678 (Version 1)
Quarter: 2016Q4

REPORT INFORMATION
  Report Type: Report from Study
  Country: US (occurrence: US)
  Receive Date: 20161206
  Receipt Date: 20161206
  Transmission Date: 20170207
  Serious: Yes (Hospitalization)
  Sender: FDA-Public Use
  Company Number: US-GILEAD-2016-0246787

PATIENT
  Age: 31 Year
  Sex: Male

DRUGS (1)
  1. AZTREONAM LYSINE [Suspect]
     Active Substance: AZTREONAM LYSINE
     Indication: RESPIRATORY TRACT MALFORMATION
     Dosage: 75 MG, UNK
     Route: 055
     Dates: start: 20160225

REACTIONS (3)
  - Malaise [Unknown]
  - Off label use [Unknown]
  - Drug dose omission [Unknown]
